FAERS Safety Report 5811331-2 (Version None)
Quarter: 2008Q3

REPORT INFORMATION
  Report Type: 
  Country: None (occurrence: None)
  Receive Date: 20080710
  Receipt Date: 20080627
  Transmission Date: 20090109
  Serious: Yes (Hospitalization)
  Sender: FDA-Public Use
  Company Number: 20080172 /

PATIENT
  Age: 41 Year
  Sex: Female

DRUGS (3)
  1. VENOFER [Suspect]
     Dosage: 300 MG. INTRAVENOUS
     Route: 042
     Dates: start: 20080603, end: 20080603
  2. VITARUBIN (VITAMIN B 12) [Concomitant]
  3. ZOMETA (ZOLEDRONACID) [Concomitant]

REACTIONS (8)
  - ABDOMINAL PAIN UPPER [None]
  - BACK PAIN [None]
  - CONSTIPATION [None]
  - HYPOCALCAEMIA [None]
  - HYPOPHOSPHATAEMIA [None]
  - PAIN IN EXTREMITY [None]
  - PYREXIA [None]
  - THROMBOCYTOPENIA [None]
